FAERS Safety Report 10391747 (Version 1)
Quarter: 2014Q3

REPORT INFORMATION
  Report Type: Spontaneous
  Country: US (occurrence: US)
  Receive Date: 20140819
  Receipt Date: 20140819
  Transmission Date: 20150326
  Serious: Yes (Other)
  Sender: FDA-Public Use
  Company Number: US-AMGEN-USASP2014062063

PATIENT
  Age: 70 Year
  Sex: Male

DRUGS (10)
  1. NEPHRO-VITE                        /01801401/ [Concomitant]
     Dosage: UNK
  2. CALCITRIOL. [Concomitant]
     Active Substance: CALCITRIOL
     Dosage: UNK
  3. ALLOPURINOL. [Concomitant]
     Active Substance: ALLOPURINOL
     Dosage: UNK
  4. NOVOLOG [Concomitant]
     Active Substance: INSULIN ASPART
     Dosage: UNK
  5. VITAMIN D3 [Concomitant]
     Active Substance: CHOLECALCIFEROL
     Dosage: UNK
  6. METOPROLOL [Concomitant]
     Active Substance: METOPROLOL
     Dosage: UNK
  7. ASPIRIN                            /00002701/ [Concomitant]
     Active Substance: ASPIRIN
     Dosage: UNK
  8. EPOGEN [Suspect]
     Active Substance: ERYTHROPOIETIN
     Indication: NEPHROGENIC ANAEMIA
     Dosage: 20000 UNIT, QWK
     Route: 065
  9. VENOFER [Concomitant]
     Active Substance: IRON SUCROSE
     Dosage: UNK UNK, QMO
     Route: 042
  10. TUMS                               /00193601/ [Concomitant]
     Dosage: UNK

REACTIONS (2)
  - Malignant neoplasm of renal pelvis [Unknown]
  - Bladder cancer [Unknown]
